FAERS Safety Report 7780197-6 (Version None)
Quarter: 2011Q3

REPORT INFORMATION
  Report Type: 
  Country: None (occurrence: None)
  Receive Date: 20110927
  Receipt Date: 20110927
  Transmission Date: 20111222
  Serious: Yes (Other)
  Sender: FDA-Public Use
  Company Number: None

PATIENT
  Age: 74 Year
  Sex: Male
  Weight: 95.254 kg

DRUGS (1)
  1. PACLITAXEL [Suspect]
     Indication: BLADDER CANCER
     Dosage: 480 MG
     Route: 042
     Dates: start: 20110909, end: 20110909

REACTIONS (3)
  - ALTERED STATE OF CONSCIOUSNESS [None]
  - INFUSION RELATED REACTION [None]
  - DEFAECATION URGENCY [None]
